FAERS Safety Report 24238570 (Version 1)
Quarter: 2024Q3

REPORT INFORMATION
  Report Type: Spontaneous
  Country: US (occurrence: US)
  Receive Date: 20240822
  Receipt Date: 20240822
  Transmission Date: 20241017
  Serious: No
  Sender: BIOCON
  Company Number: US-MIMS-BCONMC-5410

PATIENT

DRUGS (19)
  1. SEMGLEE (INSULIN GLARGINE) [Suspect]
     Active Substance: INSULIN GLARGINE
     Indication: Type 2 diabetes mellitus
     Dosage: UNK, 28 UNITS BEFORE BREAKFAST, 54 UNITS AT NIGHT, 25 AT LUNCH, 31 AT SUPPER AND 7 UNITS AT 8 PM
     Route: 058
     Dates: start: 20220222, end: 20230912
  2. SEMGLEE (INSULIN GLARGINE) [Suspect]
     Active Substance: INSULIN GLARGINE
     Dosage: UNK, 28 UNITS BEFORE BREAKFAST, 54 UNITS AT NIGHT, 25 AT LUNCH, 31 AT SUPPER AND 7 UNITS AT 8 PM
     Route: 058
     Dates: start: 20220222
  3. SEMGLEE (INSULIN GLARGINE) [Suspect]
     Active Substance: INSULIN GLARGINE
     Dosage: 54 UNITS/ML, HS
     Route: 058
     Dates: start: 20220222, end: 20230912
  4. SEMGLEE (INSULIN GLARGINE) [Suspect]
     Active Substance: INSULIN GLARGINE
     Dosage: 42 UNITS/ML, QD (IN THE MORNING)
     Route: 058
     Dates: start: 20220715, end: 20240604
  5. COGENTIN [Concomitant]
     Active Substance: BENZTROPINE MESYLATE
     Indication: Product used for unknown indication
     Dosage: UNK UNK, QD, (TABLET BY MOUTH ONCE DAILY)
     Route: 048
     Dates: start: 20240116, end: 20240618
  6. VITAMIN D3 [Concomitant]
     Active Substance: CHOLECALCIFEROL
     Indication: Product used for unknown indication
     Dosage: UNK UNK, QD
     Route: 048
     Dates: start: 20230214, end: 20240618
  7. ABILIFY [Concomitant]
     Active Substance: ARIPIPRAZOLE
     Indication: Product used for unknown indication
     Dosage: 30 MILLIGRAM, HS (TABLET BY MOUTH AT BEDTIME)
     Route: 048
     Dates: start: 20140804, end: 20240618
  8. ABILIFY [Concomitant]
     Active Substance: ARIPIPRAZOLE
     Dosage: 15 MILLIGRAM, HS (TABLET BY MOUTH AT BEDTIME)
     Route: 048
     Dates: start: 20140804
  9. ADMELOG [Concomitant]
     Active Substance: INSULIN LISPRO
     Indication: Product used for unknown indication
     Dosage: 31 UNITS/ML, QD BEFORE DINNER AT 04:00 PM
     Route: 058
     Dates: start: 20230207, end: 20240604
  10. ADMELOG [Concomitant]
     Active Substance: INSULIN LISPRO
     Dosage: 7 UNITS/ML, QD WITH EVENING SNACK
     Route: 058
     Dates: start: 20190820, end: 20240604
  11. ADMELOG [Concomitant]
     Active Substance: INSULIN LISPRO
     Dosage: 28 UNITS/ML, QD BEFORE BREAKFAST AT 6 AM
     Route: 058
     Dates: start: 20200622, end: 20240605
  12. ADMELOG [Concomitant]
     Active Substance: INSULIN LISPRO
     Dosage: 25 UNITS/ML, QD BEFORE LUNCH AT 12 PM
     Route: 058
     Dates: start: 20200622, end: 20240605
  13. ADMELOG [Concomitant]
     Active Substance: INSULIN LISPRO
     Dosage: TID BEFORE MEALS PER SCALE: 150-200: 2 IU, 201-250: 4IU, 251-300: 6IU, 301-350: 8IU, ABOVE 351: 10IU
     Route: 058
     Dates: start: 20240605, end: 20240606
  14. ADMELOG [Concomitant]
     Active Substance: INSULIN LISPRO
     Dosage: BEFORE BEDTIME PER SLIDING SCALE: 150-200: 0IU, 201-250: 1IU, 251-300: 2IU, 301-350: 3IU, ABOVE 351:
     Route: 058
     Dates: start: 20240605, end: 20240606
  15. HYDROCHLOROTHIAZIDE [Concomitant]
     Active Substance: HYDROCHLOROTHIAZIDE
     Indication: Product used for unknown indication
     Dosage: UNK UNK, QD, (TABLET BY MOUTH ONCE DAILY IN THE MORNING)
     Route: 048
     Dates: start: 20200211, end: 20240618
  16. METOPROLOL TARTRATE [Concomitant]
     Active Substance: METOPROLOL TARTRATE
     Indication: Product used for unknown indication
     Dosage: UNK UNK, BID, WITH FOOD
     Route: 048
     Dates: start: 20140804, end: 20240618
  17. ZOCOR [Concomitant]
     Active Substance: SIMVASTATIN
     Indication: Product used for unknown indication
     Dosage: UNK
     Route: 048
     Dates: start: 20140804, end: 20240617
  18. DESYREL [Concomitant]
     Active Substance: TRAZODONE HYDROCHLORIDE
     Indication: Product used for unknown indication
     Dosage: UNK
     Route: 048
     Dates: start: 20201110, end: 20240618
  19. RISPERDAL [Concomitant]
     Active Substance: RISPERIDONE
     Indication: Product used for unknown indication
     Dosage: 7 MG, QD
     Route: 048

REACTIONS (2)
  - Device defective [Unknown]
  - Device mechanical issue [Unknown]

NARRATIVE: CASE EVENT DATE: 20240604
